FAERS Safety Report 4585199-9 (Version None)
Quarter: 2005Q1

REPORT INFORMATION
  Report Type: 
  Country: None (occurrence: None)
  Receive Date: 20050217
  Receipt Date: 20050120
  Transmission Date: 20050727
  Serious: No
  Sender: FDA-Public Use
  Company Number: US-GLAXOSMITHKLINE-A0541564A

PATIENT
  Age: 34 Year
  Sex: Female

DRUGS (5)
  1. WELLBUTRIN XL [Suspect]
     Indication: IRRITABILITY
     Dosage: 150MG PER DAY
     Route: 048
     Dates: end: 20050119
  2. TOPROL-XL [Suspect]
  3. LEXAPRO [Concomitant]
  4. NEXIUM [Concomitant]
  5. XANAX [Concomitant]

REACTIONS (5)
  - DRUG INTERACTION [None]
  - FATIGUE [None]
  - IRRITABILITY [None]
  - SOMNOLENCE [None]
  - TREMOR [None]
